FAERS Safety Report 6199223-3 (Version None)
Quarter: 2009Q2

REPORT INFORMATION
  Report Type: 
  Country: None (occurrence: None)
  Receive Date: 20090519
  Receipt Date: 20090513
  Transmission Date: 20091009
  Serious: Yes (Other)
  Sender: FDA-Public Use
  Company Number: 1000006217

PATIENT
  Sex: Female

DRUGS (1)
  1. LEXAPRO [Suspect]

REACTIONS (4)
  - AFFECTIVE DISORDER [None]
  - DYSKINESIA [None]
  - HEART RATE INCREASED [None]
  - TREMOR [None]
